FAERS Safety Report 8830595 (Version 2)
Quarter: 2013Q1

REPORT INFORMATION
  Report Type: Spontaneous
  Country: US (occurrence: US)
  Receive Date: 20121009
  Receipt Date: 20130305
  Transmission Date: 20140127
  Serious: Yes (Hospitalization, Disabling)
  Sender: FDA-Public Use
  Company Number: US-BAYER-2012-104131

PATIENT
  Age: 35 Year
  Sex: Female
  Weight: 80.73 kg

DRUGS (7)
  1. YAZ [Suspect]
     Indication: ACNE
     Dosage: UNK
     Dates: start: 200806
  2. YAZ [Suspect]
     Indication: PREMENSTRUAL SYNDROME
  3. ZOCOR [Concomitant]
  4. COREG [Concomitant]
  5. MULTIVITAMIN [Concomitant]
     Dosage: UNK
     Dates: start: 2007
  6. MELATONIN [Concomitant]
     Dosage: UNK
     Dates: start: 2007
  7. FISH OIL [Concomitant]
     Dosage: UNK
     Dates: start: 2006, end: 2008

REACTIONS (14)
  - Myocardial infarction [None]
  - Pulmonary embolism [None]
  - Pain [None]
  - Injury [None]
  - General physical health deterioration [None]
  - Anxiety [None]
  - Anhedonia [None]
  - Emotional distress [None]
  - Pain [None]
  - Insomnia [None]
  - Depression [None]
  - Mental disorder [None]
  - Fear [None]
  - Off label use [None]
